FAERS Safety Report 5264548-2 (Version None)
Quarter: 2007Q1

REPORT INFORMATION
  Report Type: 
  Country: None (occurrence: None)
  Receive Date: 20061213
  Receipt Date: 20040719
  Transmission Date: 20070707
  Serious: Yes (Other)
  Sender: FDA-Public Use
  Company Number: 2004UW14149

PATIENT
  Age: 68 Year
  Sex: Female
  Weight: 49.8957 kg

DRUGS (5)
  1. IRESSA [Suspect]
     Indication: LUNG NEOPLASM MALIGNANT
     Dosage: 250 MG PO
     Route: 048
     Dates: start: 20040511
  2. CELEBREX [Concomitant]
  3. RESTORIL [Concomitant]
  4. PEPCID [Concomitant]
  5. VICODIN [Concomitant]

REACTIONS (6)
  - DIARRHOEA [None]
  - DIZZINESS [None]
  - DYSGEUSIA [None]
  - EAR DISORDER [None]
  - NECK PAIN [None]
  - RASH [None]
